FAERS Safety Report 24238615 (Version 1)
Quarter: 2024Q3

REPORT INFORMATION
  Report Type: Spontaneous
  Country: US (occurrence: None)
  Receive Date: 20240821
  Receipt Date: 20240821
  Transmission Date: 20241017
  Serious: Yes (Disabling, Other)
  Sender: Public
  Company Number: None

PATIENT
  Age: 53 Year
  Sex: Female
  Weight: 67.5 kg

DRUGS (7)
  1. VARENICLINE [Suspect]
     Active Substance: VARENICLINE
     Indication: Smoking cessation therapy
     Dosage: OTHER QUANTITY : 1 TABLET(S);?FREQUENCY : TWICE A DAY;?
     Route: 048
     Dates: start: 20240508, end: 20240723
  2. AMBIEN [Concomitant]
     Active Substance: ZOLPIDEM TARTRATE
  3. Vitamin B injections [Concomitant]
  4. C [Concomitant]
  5. D [Concomitant]
  6. ZINC [Concomitant]
     Active Substance: ZINC
  7. KELP [Concomitant]
     Active Substance: KELP

REACTIONS (11)
  - Pain in extremity [None]
  - Neuralgia [None]
  - Bruxism [None]
  - Pain in jaw [None]
  - Facial pain [None]
  - Arthralgia [None]
  - Flank pain [None]
  - Pain in extremity [None]
  - Adverse drug reaction [None]
  - Headache [None]
  - Oral disorder [None]

NARRATIVE: CASE EVENT DATE: 20240511
